FAERS Safety Report 17581668 (Version 1)
Quarter: 2020Q1

REPORT INFORMATION
  Report Type: Spontaneous
  Country: US (occurrence: US)
  Receive Date: 20200324
  Receipt Date: 20200324
  Transmission Date: 20200409
  Serious: Yes (Life-Threatening)
  Sender: FDA-Public Use
  Company Number: None

PATIENT
  Age: 67 Year
  Sex: Female
  Weight: 109 kg

DRUGS (2)
  1. MIDAZOLAM. [Suspect]
     Active Substance: MIDAZOLAM
     Indication: CATHETER PLACEMENT
     Dosage: ?          OTHER FREQUENCY:ONCE;?
     Route: 040
     Dates: start: 20200308, end: 20200308
  2. FENTANYL. [Suspect]
     Active Substance: FENTANYL
     Indication: CATHETER PLACEMENT
     Dosage: ?          OTHER FREQUENCY:X 3 DOSES;?
     Route: 040
     Dates: start: 20200308, end: 20200308

REACTIONS (1)
  - Hypoxia [None]

NARRATIVE: CASE EVENT DATE: 20200310
